FAERS Safety Report 20296428 (Version 1)
Quarter: 2022Q1

REPORT INFORMATION
  Report Type: Spontaneous
  Country: GB (occurrence: GB)
  Receive Date: 20220105
  Receipt Date: 20220105
  Transmission Date: 20220423
  Serious: Yes (Disabling, Other)
  Sender: FDA-Public Use
  Company Number: None

PATIENT
  Age: 52 Year
  Sex: Male

DRUGS (1)
  1. HUMAN RHO(D) IMMUNE GLOBULIN [Suspect]
     Active Substance: HUMAN RHO(D) IMMUNE GLOBULIN
     Indication: Product used for unknown indication
     Dosage: UNK
     Route: 065

REACTIONS (8)
  - Rheumatic disorder [Not Recovered/Not Resolved]
  - Pain [Not Recovered/Not Resolved]
  - Hand-eye coordination impaired [Not Recovered/Not Resolved]
  - Myalgia [Not Recovered/Not Resolved]
  - Poor quality sleep [Not Recovered/Not Resolved]
  - Bone pain [Not Recovered/Not Resolved]
  - Arthralgia [Not Recovered/Not Resolved]
  - Coordination abnormal [Not Recovered/Not Resolved]

NARRATIVE: CASE EVENT DATE: 20210403
